FAERS Safety Report 9877067 (Version 1)
Quarter: 2014Q1

REPORT INFORMATION
  Report Type: Spontaneous
  Country: PL (occurrence: PL)
  Receive Date: 20140206
  Receipt Date: 20140206
  Transmission Date: 20141002
  Serious: Yes (Other)
  Sender: FDA-Public Use
  Company Number: PL-BAYER-2014-015361

PATIENT
  Age: 45 Year
  Sex: Male
  Weight: 94.79 kg

DRUGS (1)
  1. BETAFERON [Suspect]
     Indication: MULTIPLE SCLEROSIS
     Dosage: 250 ?G, QOD
     Route: 058
     Dates: start: 20120104, end: 20140108

REACTIONS (3)
  - Multiple sclerosis relapse [Recovered/Resolved]
  - Nuclear magnetic resonance imaging abnormal [None]
  - Drug ineffective [None]
